FAERS Safety Report 9840637 (Version 1)
Quarter: 2014Q1

REPORT INFORMATION
  Report Type: Spontaneous
  Country: US (occurrence: US)
  Receive Date: 20140124
  Receipt Date: 20140124
  Transmission Date: 20141002
  Serious: Yes (Other)
  Sender: FDA-Public Use
  Company Number: US-PFIZER INC-2014022624

PATIENT
  Age: 50 Year
  Sex: Female
  Weight: 65.76 kg

DRUGS (3)
  1. XANAX [Suspect]
     Indication: NERVOUSNESS
     Dosage: 6 MG, DAILY
  2. XANAX [Suspect]
     Indication: ANXIETY
  3. LITHIUM [Concomitant]
     Indication: BIPOLAR I DISORDER
     Dosage: UNK

REACTIONS (1)
  - Drug dependence [Unknown]
